FAERS Safety Report 24051010 (Version 1)
Quarter: 2024Q3

REPORT INFORMATION
  Report Type: Spontaneous
  Country: DE (occurrence: DE)
  Receive Date: 20240704
  Receipt Date: 20240704
  Transmission Date: 20241016
  Serious: Yes (Death, Other)
  Sender: BRISTOL MYERS SQUIBB
  Company Number: DE-BRISTOL-MYERS SQUIBB COMPANY-2024-104919

PATIENT
  Age: 60 Year
  Sex: Male

DRUGS (8)
  1. NIVOLUMAB [Suspect]
     Active Substance: NIVOLUMAB
     Indication: Metastatic renal cell carcinoma
     Dosage: 240 MG, Q2WEEKS
     Route: 042
     Dates: start: 202206, end: 202304
  2. NIVOLUMAB [Suspect]
     Active Substance: NIVOLUMAB
     Dosage: 240 MG, Q2WEEKS
     Route: 042
     Dates: start: 20230629
  3. CABOMETYX [Suspect]
     Active Substance: CABOZANTINIB S-MALATE
     Indication: Metastatic renal cell carcinoma
     Dosage: 20 MG, QD
     Dates: start: 202206, end: 202209
  4. CABOMETYX [Suspect]
     Active Substance: CABOZANTINIB S-MALATE
     Dosage: 20 MG, QD
     Dates: start: 202209
  5. CABOMETYX [Suspect]
     Active Substance: CABOZANTINIB S-MALATE
     Dosage: 20 MG, QD
     Dates: start: 202210
  6. CABOMETYX [Suspect]
     Active Substance: CABOZANTINIB S-MALATE
     Dosage: 40 MG, QD
     Dates: end: 202304
  7. METOPROLOL [Concomitant]
     Active Substance: METOPROLOL
     Indication: Product used for unknown indication
     Dosage: 50 MG, 1.5-0-1.5
  8. RAMIPRIL [Concomitant]
     Active Substance: RAMIPRIL
     Indication: Product used for unknown indication
     Dosage: 5 MG, BID (1-0-1 (TWICE A DAY MORNING NIGHT))

REACTIONS (1)
  - Death [Fatal]
